FAERS Safety Report 20853726 (Version 1)
Quarter: 2022Q2

REPORT INFORMATION
  Report Type: Spontaneous
  Country: US (occurrence: None)
  Receive Date: 20220518
  Receipt Date: 20220518
  Transmission Date: 20220721
  Serious: Yes (Life-Threatening, Hospitalization)
  Sender: FDA-Public Use
  Company Number: None

PATIENT
  Age: 57 Year
  Sex: Male
  Weight: 112.5 kg

DRUGS (1)
  1. BUMEX [Suspect]
     Active Substance: BUMETANIDE

REACTIONS (7)
  - Dehydration [None]
  - Renal disorder [None]
  - Haematemesis [None]
  - Tremor [None]
  - Rectal haemorrhage [None]
  - Headache [None]
  - Dizziness [None]

NARRATIVE: CASE EVENT DATE: 20220518
